FAERS Safety Report 8508919-7 (Version None)
Quarter: 2012Q3

REPORT INFORMATION
  Report Type: 
  Country: None (occurrence: None)
  Receive Date: 20120713
  Receipt Date: 20120703
  Transmission Date: 20120928
  Serious: No
  Sender: FDA-Public Use
  Company Number: US-ASTRAZENECA-2012SE00593

PATIENT
  Age: 62 Year
  Sex: Female

DRUGS (3)
  1. DEXILANT [Concomitant]
  2. PRILOSEC OTC [Suspect]
     Route: 048
  3. CRESTOR [Suspect]
     Route: 048

REACTIONS (3)
  - DRUG INEFFECTIVE [None]
  - GASTROOESOPHAGEAL REFLUX DISEASE [None]
  - GASTRIC DISORDER [None]
